FAERS Safety Report 8175511-6 (Version None)
Quarter: 2012Q1

REPORT INFORMATION
  Report Type: 
  Country: None (occurrence: None)
  Receive Date: 20120229
  Receipt Date: 20120221
  Transmission Date: 20120608
  Serious: Yes (Disabling)
  Sender: FDA-Public Use
  Company Number: MX-MERCK-1202MEX00006

PATIENT
  Age: 68 Year
  Sex: Female
  Weight: 58 kg

DRUGS (7)
  1. FOSAMAX PLUS D [Suspect]
     Route: 048
     Dates: start: 20120130, end: 20120206
  2. PRAVASTATIN SODIUM [Concomitant]
     Indication: HYPERCHOLESTEROLAEMIA
     Route: 048
     Dates: start: 20000101
  3. TIMOLOL [Concomitant]
     Indication: GLAUCOMA
     Route: 047
     Dates: start: 20070101
  4. LEVOTHYROXINE SODIUM [Concomitant]
     Indication: HYPOTHYROIDISM
     Route: 065
     Dates: start: 20080101
  5. GLUCOSAMINE SULFATE AND MELOXICAM [Concomitant]
     Indication: OSTEOARTHRITIS
     Route: 048
     Dates: start: 20100101
  6. [COMPOSITION UNSPECIFIED] [Concomitant]
     Indication: EYE LUBRICATION THERAPY
     Route: 047
     Dates: start: 20070101
  7. DIISOPROPYLAMINE DICHLOROACETATE [Concomitant]
     Indication: GLAUCOMA
     Route: 065
     Dates: start: 20070101

REACTIONS (5)
  - MUSCULOSKELETAL STIFFNESS [None]
  - PAIN IN EXTREMITY [None]
  - SENSATION OF HEAVINESS [None]
  - MUSCLE SPASMS [None]
  - MYALGIA [None]
